FAERS Safety Report 9101352 (Version 1)
Quarter: 2013Q1

REPORT INFORMATION
  Report Type: Spontaneous
  Country: US (occurrence: US)
  Receive Date: 20130218
  Receipt Date: 20130218
  Transmission Date: 20140127
  Serious: Yes (Death)
  Sender: FDA-Public Use
  Company Number: US-COVIDIEN/TYCO HEALTHCARE/MALLINCKRODT-T201300649

PATIENT
  Sex: 0

DRUGS (12)
  1. HYDROCODONE/ACETAMINOPHEN [Suspect]
     Dosage: UNK
     Route: 048
  2. NICARDIPINE [Suspect]
  3. ETHANOL [Suspect]
     Dosage: UNK
     Route: 048
  4. METOPROLOL [Suspect]
  5. INSULIN [Suspect]
  6. METFORMIN [Suspect]
  7. CYCLOBENZAPRINE [Suspect]
  8. LISINOPRIL [Suspect]
  9. HYDROCHLOROTHIAZIDE [Suspect]
  10. CLONIDINE [Suspect]
  11. VITAMIN D [Suspect]
  12. AMOXICILLIN [Suspect]

REACTIONS (4)
  - Completed suicide [Fatal]
  - Cardio-respiratory arrest [Fatal]
  - Cardiac arrest [None]
  - Respiratory arrest [None]
